FAERS Safety Report 12346539 (Version 1)
Quarter: 2016Q2

REPORT INFORMATION
  Report Type: Spontaneous
  Country: GR (occurrence: GR)
  Receive Date: 20160509
  Receipt Date: 20160509
  Transmission Date: 20160815
  Serious: Yes (Other)
  Sender: FDA-Public Use
  Company Number: GR-009507513-1602GRC007662

PATIENT
  Age: 67 Year
  Sex: Male
  Weight: 78 kg

DRUGS (3)
  1. ZARATOR [Concomitant]
     Active Substance: ATORVASTATIN CALCIUM
     Dosage: 1 DF AFTER LUNCH
  2. GLUCOPHAGE [Concomitant]
     Active Substance: METFORMIN HYDROCHLORIDE
     Dosage: 0.5 DF BEFORE LUNCH
  3. JANUMET [Suspect]
     Active Substance: METFORMIN HYDROCHLORIDE\SITAGLIPTIN PHOSPHATE
     Indication: TYPE 2 DIABETES MELLITUS
     Dosage: 2 TABLETS (100/2000 MG), DAILY
     Route: 048
     Dates: start: 2014

REACTIONS (1)
  - Dysuria [Recovered/Resolved]
